FAERS Safety Report 8428432-5 (Version None)
Quarter: 2012Q2

REPORT INFORMATION
  Report Type: 
  Country: None (occurrence: None)
  Receive Date: 20120612
  Receipt Date: 20120607
  Transmission Date: 20120825
  Serious: No
  Sender: FDA-Public Use
  Company Number: US-BIOGENIDEC-2012BI020309

PATIENT
  Age: 37 Year
  Sex: Female

DRUGS (2)
  1. TYSABRI [Suspect]
     Indication: MULTIPLE SCLEROSIS
     Route: 042
     Dates: start: 20090814, end: 20100709
  2. TYSABRI [Suspect]
     Route: 042
     Dates: start: 20110815

REACTIONS (4)
  - MUSCULOSKELETAL PAIN [None]
  - VISUAL ACUITY REDUCED [None]
  - HYPOAESTHESIA [None]
  - NECK PAIN [None]
